FAERS Safety Report 25766345 (Version 1)
Quarter: 2025Q3

REPORT INFORMATION
  Report Type: Spontaneous
  Country: EU (occurrence: EU)
  Receive Date: 20250905
  Receipt Date: 20250905
  Transmission Date: 20251021
  Serious: Yes (Death, Other)
  Sender: DR REDDYS
  Company Number: None

PATIENT
  Age: 35 Year
  Sex: Female
  Weight: 48 kg

DRUGS (10)
  1. LAMOTRIGINE [Suspect]
     Active Substance: LAMOTRIGINE
     Indication: Product used for unknown indication
  2. PREGABALIN [Suspect]
     Active Substance: PREGABALIN
     Indication: Product used for unknown indication
  3. ZOPICLONE [Suspect]
     Active Substance: ZOPICLONE
     Indication: Product used for unknown indication
  4. DESVENLAFAXINE [Suspect]
     Active Substance: DESVENLAFAXINE
     Indication: Product used for unknown indication
  5. DESVENLAFAXINE [Suspect]
     Active Substance: DESVENLAFAXINE
     Indication: Product used for unknown indication
  6. MODAFINIL [Suspect]
     Active Substance: MODAFINIL
     Indication: Product used for unknown indication
  7. TRAMADOL HYDROCHLORIDE [Suspect]
     Active Substance: TRAMADOL HYDROCHLORIDE
     Indication: Product used for unknown indication
     Route: 048
  8. ZOLPIDEM [Suspect]
     Active Substance: ZOLPIDEM TARTRATE
     Indication: Product used for unknown indication
  9. DIPHENHYDRAMINE [Suspect]
     Active Substance: DIPHENHYDRAMINE
     Indication: Product used for unknown indication
  10. CORTISONE [Concomitant]
     Active Substance: CORTISONE
     Indication: Multiple sclerosis

REACTIONS (3)
  - Toxicity to various agents [Fatal]
  - Cutaneous vasculitis [Fatal]
  - Completed suicide [Fatal]
